FAERS Safety Report 25867290 (Version 1)
Quarter: 2025Q4

REPORT INFORMATION
  Report Type: Spontaneous
  Country: EU (occurrence: EU)
  Receive Date: 20251001
  Receipt Date: 20251001
  Transmission Date: 20260117
  Serious: Yes (Hospitalization, Other)
  Sender: AUROBINDO
  Company Number: EU-AFSSAPS-TO2025001273

PATIENT
  Age: 74 Year
  Sex: Male
  Weight: 55 kg

DRUGS (2)
  1. CARBOPLATIN [Suspect]
     Active Substance: CARBOPLATIN
     Indication: Lung neoplasm malignant
     Dosage: 825 MILLIGRAM, 3WK (WEEK)
     Route: 042
     Dates: start: 20241031
  2. ALIMTA [Suspect]
     Active Substance: PEMETREXED DISODIUM
     Indication: Breast cancer
     Dosage: 590 MILLIGRAM
     Route: 042
     Dates: start: 20241031

REACTIONS (1)
  - Clostridium difficile colitis [Recovering/Resolving]

NARRATIVE: CASE EVENT DATE: 20241204
